FAERS Safety Report 7677866-5 (Version None)
Quarter: 2011Q3

REPORT INFORMATION
  Report Type: 
  Country: None (occurrence: None)
  Receive Date: 20110811
  Receipt Date: 20110803
  Transmission Date: 20111222
  Serious: Yes (Hospitalization, Disabling)
  Sender: FDA-Public Use
  Company Number: US-MERCK-1101USA01769

PATIENT
  Age: 54 Year
  Sex: Female
  Weight: 80 kg

DRUGS (8)
  1. FOSAMAX [Suspect]
     Route: 048
     Dates: end: 20070101
  2. FOSAMAX [Suspect]
     Route: 048
     Dates: start: 20030711, end: 20040913
  3. FOSAMAX [Suspect]
     Indication: OSTEOPOROSIS
     Route: 048
     Dates: start: 19970101, end: 20001201
  4. FOSAMAX [Suspect]
     Route: 048
     Dates: end: 20070101
  5. FOSAMAX [Suspect]
     Indication: MENOPAUSE
     Route: 048
     Dates: start: 19970101, end: 20001201
  6. FOSAMAX [Suspect]
     Route: 048
     Dates: start: 20030711, end: 20040913
  7. FOSAMAX [Suspect]
     Route: 048
     Dates: start: 20040914, end: 20090101
  8. FOSAMAX [Suspect]
     Route: 048
     Dates: start: 20040914, end: 20090101

REACTIONS (32)
  - DEAFNESS UNILATERAL [None]
  - PAIN IN EXTREMITY [None]
  - NAUSEA [None]
  - VIRAL INFECTION [None]
  - FATIGUE [None]
  - JOINT SWELLING [None]
  - BRONCHITIS [None]
  - MASS [None]
  - BLOOD TRIGLYCERIDES INCREASED [None]
  - COAGULOPATHY [None]
  - PARAESTHESIA [None]
  - INSOMNIA [None]
  - FEMUR FRACTURE [None]
  - CEREBROVASCULAR ACCIDENT [None]
  - BONE PAIN [None]
  - GASTROOESOPHAGEAL REFLUX DISEASE [None]
  - SPINAL OSTEOARTHRITIS [None]
  - SYNCOPE [None]
  - HAEMORRHAGIC ANAEMIA [None]
  - CHONDROCALCINOSIS [None]
  - SPONDYLOLISTHESIS [None]
  - HERPES ZOSTER [None]
  - VULVOVAGINAL PRURITUS [None]
  - HAEMATURIA [None]
  - GAIT DISTURBANCE [None]
  - RETINAL DISORDER [None]
  - CATARACT [None]
  - ARTHROPATHY [None]
  - FALL [None]
  - OSTEOARTHRITIS [None]
  - CONNECTIVE TISSUE DISORDER [None]
  - CAROTID ARTERY DISEASE [None]
